FAERS Safety Report 9852825 (Version 1)
Quarter: 2014Q1

REPORT INFORMATION
  Report Type: Spontaneous
  Country: US (occurrence: None)
  Receive Date: 20140127
  Receipt Date: 20140127
  Transmission Date: 20141002
  Serious: Yes (Death)
  Sender: FDA-Public Use
  Company Number: B0962464A

PATIENT
  Sex: 0

DRUGS (3)
  1. MELPHALAN (FORMULATION UNKNOWN) (GENERIC) (MELPHALAN) [Suspect]
     Indication: BONE MARROW TRANSPLANT
  2. FLUDARABINE PHOSPHATE (FORMULATION UNKNOWN) (FLUDARABINE PHOSPHATE) [Suspect]
     Indication: BONE MARROW TRANSPLANT
  3. RADIOTHERAPY (FORMULATION UNKNOWN) (RADIOTHERAPY) [Suspect]
     Indication: BONE MARROW TRANSPLANT

REACTIONS (1)
  - Multi-organ failure [None]
